FAERS Safety Report 7331165-X (Version None)
Quarter: 2011Q1

REPORT INFORMATION
  Report Type: 
  Country: None (occurrence: None)
  Receive Date: 20110304
  Receipt Date: 20110223
  Transmission Date: 20110831
  Serious: Yes (Death, Hospitalization)
  Sender: FDA-Public Use
  Company Number: US-BRISTOL-MYERS SQUIBB COMPANY-15278922

PATIENT
  Age: 72 Year
  Sex: Male
  Weight: 92 kg

DRUGS (8)
  1. ALBUTEROL [Concomitant]
     Dosage: 1 DF:2 PUFFS
     Route: 055
  2. PERCOCET [Concomitant]
     Dosage: Q4H
  3. FLOMAX [Concomitant]
     Route: 048
  4. VALACYCLOVIR [Concomitant]
  5. PRILOSEC [Concomitant]
     Route: 048
  6. PREDNISONE [Concomitant]
     Route: 048
  7. DASATINIB [Suspect]
     Indication: NON-SMALL CELL LUNG CANCER
     Dosage: 13-23AUG2010; INTERRUPTED FOR 2 WKS, THEN RESUMED 06-16SEP2010 AND DISCONTINUED.
     Route: 048
     Dates: start: 20100813, end: 20100916
  8. MESALAMINE [Concomitant]
     Route: 048

REACTIONS (8)
  - FAILURE TO THRIVE [None]
  - HERPES ZOSTER OPHTHALMIC [None]
  - NEOPLASM MALIGNANT [None]
  - FATIGUE [None]
  - DYSPNOEA [None]
  - PULMONARY EMBOLISM [None]
  - DEHYDRATION [None]
  - RENAL FAILURE ACUTE [None]
